FAERS Safety Report 4381295-X (Version None)
Quarter: 2004Q2

REPORT INFORMATION
  Report Type: 
  Country: None (occurrence: None)
  Receive Date: 20040617
  Receipt Date: 20040617
  Transmission Date: 20050107
  Serious: Yes (Hospitalization)
  Sender: FDA-Public Use
  Company Number: None

PATIENT
  Age: 90 Year
  Sex: Male

DRUGS (2)
  1. QUINAPRIL HCL [Suspect]
  2. RISPERDAL [Suspect]

REACTIONS (3)
  - DERMATITIS BULLOUS [None]
  - DYSPNOEA [None]
  - RASH [None]
